FAERS Safety Report 11322217 (Version 1)
Quarter: 2015Q3

REPORT INFORMATION
  Report Type: Report from Study
  Country: AR (occurrence: AR)
  Receive Date: 20150729
  Receipt Date: 20150729
  Transmission Date: 20151125
  Serious: Yes (Other)
  Sender: FDA-Public Use
  Company Number: PHHY2015AR081521

PATIENT
  Sex: Male
  Weight: 98 kg

DRUGS (4)
  1. LEVOTHYROXINE. [Concomitant]
     Active Substance: LEVOTHYROXINE
     Indication: HYPOTHYROIDISM
     Route: 065
  2. ULTIBRO BREEZHALER [Suspect]
     Active Substance: GLYCOPYRRONIUM\INDACATEROL
     Indication: FATIGUE
     Dosage: 1 DF (PUFF), QD
     Route: 065
     Dates: start: 201506
  3. ULTIBRO BREEZHALER [Suspect]
     Active Substance: GLYCOPYRRONIUM\INDACATEROL
     Indication: AGITATION
  4. ANTICOAGULANTS [Concomitant]
     Active Substance: UNSPECIFIED INGREDIENT
     Indication: PRODUCT USED FOR UNKNOWN INDICATION
     Route: 065

REACTIONS (5)
  - Thyroid disorder [Recovering/Resolving]
  - Diabetes mellitus [Recovering/Resolving]
  - Obstructive airways disorder [Recovering/Resolving]
  - Product use issue [Unknown]
  - Diabetic complication [Recovering/Resolving]
